FAERS Safety Report 6037379-3 (Version None)
Quarter: 2009Q1

REPORT INFORMATION
  Report Type: 
  Country: None (occurrence: None)
  Receive Date: 20090114
  Receipt Date: 20081202
  Transmission Date: 20090719
  Serious: Yes (Life-Threatening, Hospitalization)
  Sender: FDA-Public Use
  Company Number: GB-PFIZER INC-2009154538

PATIENT

DRUGS (5)
  1. PREGABALIN [Suspect]
     Indication: NEUROPATHY PERIPHERAL
     Dosage: 1 DOSE FORM THREE TIMES A DAY
     Route: 048
     Dates: start: 20081028, end: 20081111
  2. GABAPENTIN [Concomitant]
     Dosage: 900 MG, 3X/DAY
     Dates: start: 20080507
  3. LANSOPRAZOLE [Concomitant]
     Dosage: 1 DOSE FORM DAILY
     Dates: start: 20010829
  4. LOSARTAN POTASSIUM [Concomitant]
     Dosage: 1 DOSE FORM DAILY
     Dates: start: 20061211
  5. QUININE BISULFATE [Concomitant]
     Dosage: 1 DOSE FORM DAILY
     Dates: start: 20010704

REACTIONS (1)
  - MYOCARDIAL INFARCTION [None]
